FAERS Safety Report 5949977-3 (Version None)
Quarter: 2008Q4

REPORT INFORMATION
  Report Type: 
  Country: None (occurrence: None)
  Receive Date: 20081112
  Receipt Date: 20081110
  Transmission Date: 20090506
  Serious: Yes (Hospitalization)
  Sender: FDA-Public Use
  Company Number: FR-JNJFOC-20081101894

PATIENT
  Age: 37 Year
  Sex: Male

DRUGS (1)
  1. OFLOCET [Suspect]
     Indication: PROSTATITIS
     Route: 048

REACTIONS (6)
  - ANGIOEDEMA [None]
  - CHEST DISCOMFORT [None]
  - DYSPHONIA [None]
  - FACE OEDEMA [None]
  - MUSCLE CONTRACTURE [None]
  - PARAESTHESIA ORAL [None]
